FAERS Safety Report 13199359 (Version 1)
Quarter: 2017Q1

REPORT INFORMATION
  Report Type: Spontaneous
  Country: JP (occurrence: JP)
  Receive Date: 20170208
  Receipt Date: 20170208
  Transmission Date: 20170428
  Serious: Yes (Hospitalization, Other)
  Sender: FDA-Public Use
  Company Number: JP-PFIZER INC-2017047202

PATIENT
  Sex: Male

DRUGS (2)
  1. HYALEIN [Concomitant]
     Active Substance: HYALURONATE SODIUM
     Route: 047
  2. XALATAN [Suspect]
     Active Substance: LATANOPROST

REACTIONS (3)
  - Muscular weakness [Unknown]
  - Pneumonia [Unknown]
  - Abasia [Unknown]
